FAERS Safety Report 14240101 (Version 1)
Quarter: 2017Q4

REPORT INFORMATION
  Report Type: Spontaneous
  Country: US (occurrence: US)
  Receive Date: 20171129
  Receipt Date: 20171129
  Transmission Date: 20180321
  Serious: Yes (Other)
  Sender: FDA-Public Use
  Company Number: None

PATIENT
  Age: 50 Year
  Weight: 65.25 kg

DRUGS (3)
  1. VITAMIN B [Concomitant]
     Active Substance: VITAMIN B
  2. HYDROCHLOROTHIAZIDE. [Concomitant]
     Active Substance: HYDROCHLOROTHIAZIDE
  3. LATISSE [Suspect]
     Active Substance: BIMATOPROST
     Indication: MADAROSIS
     Route: 061

REACTIONS (4)
  - Asthma [None]
  - Dizziness [None]
  - Wheezing [None]
  - Dyspnoea [None]

NARRATIVE: CASE EVENT DATE: 20171101
